FAERS Safety Report 12492741 (Version 1)
Quarter: 2016Q2

REPORT INFORMATION
  Report Type: Spontaneous
  Country: US (occurrence: None)
  Receive Date: 20160622
  Receipt Date: 20160622
  Transmission Date: 20160815
  Serious: Yes (Other)
  Sender: FDA-Public Use
  Company Number: None

PATIENT
  Age: 52 Year
  Sex: Female
  Weight: 48 kg

DRUGS (1)
  1. OXALIPLATIN, 5MG/ML, UNAVAILABLE FOR REPORT [Suspect]
     Active Substance: OXALIPLATIN
     Indication: NEOPLASM MALIGNANT
     Route: 041
     Dates: start: 20150701, end: 20160511

REACTIONS (4)
  - Nasal congestion [None]
  - Chest pain [None]
  - Oral discomfort [None]
  - Infusion related reaction [None]

NARRATIVE: CASE EVENT DATE: 20160511
